FAERS Safety Report 4808468-3 (Version None)
Quarter: 2005Q4

REPORT INFORMATION
  Report Type: 
  Country: None (occurrence: None)
  Receive Date: 20051025
  Receipt Date: 20050916
  Transmission Date: 20060501
  Serious: Yes (Death)
  Sender: FDA-Public Use
  Company Number: US-BRISTOL-MYERS SQUIBB COMPANY-13113360

PATIENT
  Age: 75 Year
  Sex: Male
  Weight: 61 kg

DRUGS (4)
  1. COUMADIN [Suspect]
     Indication: PULMONARY EMBOLISM
     Route: 048
     Dates: start: 20040912, end: 20050915
  2. COUMADIN [Suspect]
     Indication: PULMONARY OEDEMA
     Route: 048
     Dates: start: 20040912, end: 20050915
  3. CASODEX [Concomitant]
     Dosage: DURATION: SEVERAL MONTHS
     Dates: end: 20050901
  4. LASIX [Concomitant]
     Dosage: DURATION: SEVERAL MONTHS
     Dates: end: 20050901

REACTIONS (1)
  - RESPIRATORY FAILURE [None]
